FAERS Safety Report 7274858-5 (Version None)
Quarter: 2011Q1

REPORT INFORMATION
  Report Type: 
  Country: None (occurrence: None)
  Receive Date: 20110202
  Receipt Date: 20110202
  Transmission Date: 20110831
  Serious: Yes (Other)
  Sender: FDA-Public Use
  Company Number: None

PATIENT
  Sex: Female
  Weight: 61 kg

DRUGS (9)
  1. LIDOCAINE [Suspect]
  2. PROPOFOL [Suspect]
  3. METHADONE HCL [Suspect]
  4. ZOFRAN [Suspect]
  5. VERSED [Suspect]
  6. HEPARIN [Suspect]
  7. ANCEF [Concomitant]
  8. ROCURONIUM BROMIDE [Suspect]
     Indication: ANAESTHESIA
     Dosage: 175 MULTIPLE DOSES IV BOLUS
     Route: 040
     Dates: start: 20110119, end: 20110119
  9. FENTANYL [Suspect]

REACTIONS (2)
  - PRODUCT QUALITY ISSUE [None]
  - DRUG EFFECT DECREASED [None]
